FAERS Safety Report 9560961 (Version 1)
Quarter: 2013Q3

REPORT INFORMATION
  Report Type: Spontaneous
  Country: US (occurrence: US)
  Receive Date: 20130927
  Receipt Date: 20130927
  Transmission Date: 20140515
  Serious: No
  Sender: FDA-Public Use
  Company Number: US-BIOGENIDEC-2013BI055672

PATIENT
  Age: 67 Year
  Sex: Female

DRUGS (3)
  1. TECFIDERA [Suspect]
     Indication: PRODUCT USED FOR UNKNOWN INDICATION
  2. CALCIUM + VIT D3 [Concomitant]
  3. PROBIOTIC + ACIDOPHILUS [Concomitant]

REACTIONS (4)
  - Pyrexia [Unknown]
  - Dehydration [Unknown]
  - Vomiting [Unknown]
  - Gastroenteritis [Unknown]
